FAERS Safety Report 8067519-6 (Version None)
Quarter: 2012Q1

REPORT INFORMATION
  Report Type: 
  Country: None (occurrence: None)
  Receive Date: 20120124
  Receipt Date: 20120117
  Transmission Date: 20120608
  Serious: Yes (Hospitalization)
  Sender: FDA-Public Use
  Company Number: AU-B.I. PHARMACEUTICALS,INC./RIDGEFIELD-2011-AU-01419AU

PATIENT
  Age: 86 Year
  Sex: Male

DRUGS (9)
  1. PRADAXA [Suspect]
     Indication: CEREBROVASCULAR ACCIDENT PROPHYLAXIS
     Dosage: 220 MG
     Dates: start: 20110802, end: 20110914
  2. PRADAXA [Suspect]
     Indication: ATRIAL FIBRILLATION
  3. LANOXIN [Concomitant]
  4. PANADOL OSTEO [Concomitant]
  5. BRICANYL [Concomitant]
  6. LASIX [Concomitant]
  7. SPIRIVA [Concomitant]
  8. TEVETEN [Concomitant]
  9. FLUTICASONE PROPIONATE/SALMETEROL [Concomitant]

REACTIONS (2)
  - MELAENA [None]
  - DIZZINESS [None]
